FAERS Safety Report 17368998 (Version 4)
Quarter: 2020Q3

REPORT INFORMATION
  Report Type: Spontaneous
  Country: CA (occurrence: CA)
  Receive Date: 20200204
  Receipt Date: 20200706
  Transmission Date: 20201102
  Serious: Yes (Other)
  Sender: FDA-Public Use
  Company Number: CA-CELLTRION INC.-2019CA021016

PATIENT

DRUGS (17)
  1. INFLECTRA [Suspect]
     Active Substance: INFLIXIMAB-DYYB
     Dosage: 250 MG, WEEK 0, 2, 6, THEN EVERY 8 WEEKS
     Route: 042
     Dates: start: 20190401, end: 20190401
  2. INFLECTRA [Suspect]
     Active Substance: INFLIXIMAB-DYYB
     Dosage: 250 MG, WEEK 0, 2, 6, THEN EVERY 8 WEEKS
     Route: 042
     Dates: start: 20190708, end: 20190708
  3. PANTOPRAZOLE [Concomitant]
     Active Substance: PANTOPRAZOLE
     Dosage: UNK
     Route: 065
  4. INFLECTRA [Suspect]
     Active Substance: INFLIXIMAB-DYYB
     Indication: RHEUMATOID ARTHRITIS
     Dosage: 250 MG, WEEK 0, 2, 6, THEN EVERY 8 WEEKS
     Route: 042
     Dates: start: 20190319, end: 20190319
  5. INFLECTRA [Suspect]
     Active Substance: INFLIXIMAB-DYYB
     Dosage: 250 MG EVERY 6 WEEKS
     Route: 042
     Dates: start: 20200123, end: 20200123
  6. INFLECTRA [Suspect]
     Active Substance: INFLIXIMAB-DYYB
     Dosage: 250 MG, WEEK 0, 2, 6, THEN EVERY 8 WEEKS
     Route: 042
     Dates: start: 20190513
  7. INFLECTRA [Suspect]
     Active Substance: INFLIXIMAB-DYYB
     Dosage: 250 MG, WEEK 0, 2, 6, THEN EVERY 8 WEEKS
     Route: 042
     Dates: start: 20191031, end: 20191031
  8. INFLECTRA [Suspect]
     Active Substance: INFLIXIMAB-DYYB
     Dosage: 250 MG EVERY 6 WEEKS
     Route: 042
     Dates: start: 20200629
  9. LEFLUNOMIDE. [Concomitant]
     Active Substance: LEFLUNOMIDE
     Dosage: 20 MG, UNK
     Route: 065
  10. LINAGLIPTIN [Concomitant]
     Active Substance: LINAGLIPTIN
     Dosage: UNK
     Route: 065
  11. INFLECTRA [Suspect]
     Active Substance: INFLIXIMAB-DYYB
     Dosage: 250 MG, WEEK 0, 2, 6, THEN EVERY 8 WEEKS
     Route: 042
     Dates: start: 20190904, end: 20190904
  12. INFLECTRA [Suspect]
     Active Substance: INFLIXIMAB-DYYB
     Dosage: 250 MG EVERY 6 WEEKS
     Route: 042
     Dates: start: 20200318, end: 20200318
  13. INFLECTRA [Suspect]
     Active Substance: INFLIXIMAB-DYYB
     Dosage: 250 MG EVERY 6 WEEKS
     Route: 042
     Dates: start: 20200511
  14. LOMOTIL [LOPERAMIDE HYDROCHLORIDE] [Concomitant]
     Active Substance: LOPERAMIDE HYDROCHLORIDE
     Dosage: UNK
     Route: 065
  15. LANTUS [Concomitant]
     Active Substance: INSULIN GLARGINE
     Dosage: UNK
     Route: 065
  16. CANDESARTAN. [Concomitant]
     Active Substance: CANDESARTAN
     Dosage: 8 MG, UNK
     Route: 065
  17. GABAPENTIN. [Concomitant]
     Active Substance: GABAPENTIN
     Dosage: 100 MG, UNK
     Route: 065

REACTIONS (11)
  - Inappropriate schedule of product administration [Unknown]
  - Off label use [Unknown]
  - Blood pressure increased [Unknown]
  - Blood pressure fluctuation [Unknown]
  - Malaise [Unknown]
  - Eye contusion [Unknown]
  - Pain [Not Recovered/Not Resolved]
  - Syncope [Recovered/Resolved]
  - Incorrect dose administered [Unknown]
  - Heart rate decreased [Unknown]
  - Escherichia urinary tract infection [Unknown]

NARRATIVE: CASE EVENT DATE: 2019
